FAERS Safety Report 9247722 (Version 2)
Quarter: 2013Q2

REPORT INFORMATION
  Report Type: Spontaneous
  Country: US (occurrence: US)
  Receive Date: 20130423
  Receipt Date: 20130523
  Transmission Date: 20140414
  Serious: Yes (Other)
  Sender: FDA-Public Use
  Company Number: US-PFIZER INC-2013125222

PATIENT
  Age: 49 Year
  Sex: Female
  Weight: 48.98 kg

DRUGS (5)
  1. LYRICA [Suspect]
     Indication: NEURALGIA
     Dosage: 50 MG, 1X/DAY
     Route: 048
     Dates: start: 201304, end: 201304
  2. LYRICA [Suspect]
     Dosage: 50 MG, 2X/DAY
     Route: 048
     Dates: start: 201304
  3. IBUPROFEN [Concomitant]
     Dosage: UNK, AS NEEDED
  4. TYLENOL [Concomitant]
     Dosage: UNK, AS NEEDED
  5. ALEVE [Concomitant]
     Dosage: UNK, AS NEEDED

REACTIONS (11)
  - Cognitive disorder [Not Recovered/Not Resolved]
  - Disorientation [Recovering/Resolving]
  - Confusional state [Recovering/Resolving]
  - Disturbance in attention [Not Recovered/Not Resolved]
  - Drug ineffective [Unknown]
  - Memory impairment [Recovering/Resolving]
  - Anxiety [Recovering/Resolving]
  - Feeling abnormal [Recovering/Resolving]
  - Distractibility [Recovering/Resolving]
  - Weight increased [Recovering/Resolving]
  - Euphoric mood [Recovering/Resolving]
